FAERS Safety Report 21445157 (Version 2)
Quarter: 2022Q4

REPORT INFORMATION
  Report Type: Spontaneous
  Country: US (occurrence: US)
  Receive Date: 20221012
  Receipt Date: 20221205
  Transmission Date: 20230112
  Serious: No
  Sender: FDA-Public Use
  Company Number: US-JNJFOC-20221002042

PATIENT
  Age: 64 Year
  Sex: Male

DRUGS (9)
  1. SYMTUZA [Suspect]
     Active Substance: COBICISTAT\DARUNAVIR\EMTRICITABINE\TENOFOVIR ALAFENAMIDE
     Indication: Product used for unknown indication
     Dosage: 800/150/200/10 MG
     Route: 048
     Dates: start: 20220908, end: 20220909
  2. TIVICAY [Concomitant]
     Active Substance: DOLUTEGRAVIR SODIUM
     Indication: HIV infection
     Route: 065
     Dates: start: 20161026
  3. ARGININE [Concomitant]
     Active Substance: ARGININE
     Route: 065
     Dates: start: 20161026
  4. ASPIRIN [Concomitant]
     Active Substance: ASPIRIN
     Indication: Deep vein thrombosis
     Route: 065
     Dates: start: 20161026
  5. B-COMPLEX [VITAMIN B COMPLEX] [Concomitant]
     Route: 065
     Dates: start: 20161026
  6. ZINC [Concomitant]
     Active Substance: ZINC
     Route: 065
     Dates: start: 20190315
  7. TORSEMIDE [Concomitant]
     Active Substance: TORSEMIDE
     Indication: Hypertension
     Route: 065
     Dates: start: 20161026
  8. ATENOLOL [Concomitant]
     Active Substance: ATENOLOL
     Indication: Hypertension
     Route: 065
     Dates: start: 20161026
  9. ENALAPRIL [Concomitant]
     Active Substance: ENALAPRIL
     Indication: Hypertension
     Route: 065
     Dates: start: 20161026

REACTIONS (3)
  - Erythema [Unknown]
  - Pruritus [Unknown]
  - Headache [Unknown]

NARRATIVE: CASE EVENT DATE: 20220101
